FAERS Safety Report 8394918-5 (Version None)
Quarter: 2012Q2

REPORT INFORMATION
  Report Type: 
  Country: None (occurrence: None)
  Receive Date: 20120530
  Receipt Date: 20110624
  Transmission Date: 20120825
  Serious: No
  Sender: FDA-Public Use
  Company Number: US-GLAXOSMITHKLINE-A0933940A

PATIENT
  Age: 51 Year
  Sex: Female
  Weight: 138.3 kg

DRUGS (2)
  1. COUMADIN [Concomitant]
  2. FLOLAN [Suspect]
     Indication: COR PULMONALE CHRONIC
     Route: 042
     Dates: start: 20030913

REACTIONS (1)
  - SKIN DISORDER [None]
